FAERS Safety Report 18023682 (Version 1)
Quarter: 2020Q3

REPORT INFORMATION
  Report Type: Spontaneous
  Country: CH (occurrence: CH)
  Receive Date: 20200714
  Receipt Date: 20200714
  Transmission Date: 20201103
  Serious: Yes (Hospitalization, Other)
  Sender: FDA-Public Use
  Company Number: CH-ELI_LILLY_AND_COMPANY-CH202007002066

PATIENT
  Age: 82 Year
  Sex: Female

DRUGS (5)
  1. LITHIOFOR [Concomitant]
     Active Substance: LITHIUM SULFATE
     Indication: MANIA
     Dosage: 6 MMOL, DAILY
     Route: 048
     Dates: start: 20200611, end: 20200611
  2. DISTRANEURIN [CLOMETHIAZOLE EDISILATE] [Concomitant]
     Indication: DEPRESSIVE SYMPTOM
     Dosage: UNK UNK, UNKNOWN
     Route: 065
     Dates: start: 202003
  3. TEMESTA [LORAZEPAM] [Concomitant]
     Active Substance: LORAZEPAM
     Indication: DEPRESSIVE SYMPTOM
     Dosage: UNK, UNKNOWN
     Route: 065
     Dates: start: 202003
  4. ZYPREXA [Suspect]
     Active Substance: OLANZAPINE
     Indication: BEHAVIOUR DISORDER
     Dosage: 3.75 MG, DAILY
     Route: 048
     Dates: start: 20200603
  5. ZYPREXA [Suspect]
     Active Substance: OLANZAPINE
     Dosage: 10 MG, DAILY
     Route: 048
     Dates: end: 20200611

REACTIONS (9)
  - Renal impairment [Unknown]
  - Hyperreflexia [Unknown]
  - Fall [Unknown]
  - Pyrexia [Recovered/Resolved]
  - Confusional state [Recovered/Resolved]
  - Anticholinergic syndrome [Unknown]
  - Muscle rigidity [Unknown]
  - Neuroleptic malignant syndrome [Unknown]
  - Coma scale abnormal [Unknown]

NARRATIVE: CASE EVENT DATE: 20200611
